FAERS Safety Report 4948587-4 (Version None)
Quarter: 2006Q1

REPORT INFORMATION
  Report Type: 
  Country: None (occurrence: None)
  Receive Date: 20060320
  Receipt Date: 20050930
  Transmission Date: 20060701
  Serious: Yes (Death, Hospitalization, Disabling, Other)
  Sender: FDA-Public Use
  Company Number: US-MERCK-0510USA01178

PATIENT
  Age: 38 Year
  Sex: Female
  Weight: 118 kg

DRUGS (1)
  1. VIOXX [Suspect]
     Route: 048
     Dates: start: 19990501, end: 20040930

REACTIONS (11)
  - APPENDIX DISORDER [None]
  - CARDIOVASCULAR DISORDER [None]
  - CEREBROVASCULAR ACCIDENT [None]
  - CHEST PAIN [None]
  - DEATH [None]
  - DEHYDRATION [None]
  - DIABETES MELLITUS [None]
  - GASTRIC DISORDER [None]
  - MYOCARDIAL INFARCTION [None]
  - NECK INJURY [None]
  - PULMONARY EMBOLISM [None]
